FAERS Safety Report 8378404-4 (Version None)
Quarter: 2012Q2

REPORT INFORMATION
  Report Type: 
  Country: None (occurrence: None)
  Receive Date: 20120522
  Receipt Date: 20120514
  Transmission Date: 20120825
  Serious: Yes (Other)
  Sender: FDA-Public Use
  Company Number: US-JNJFOC-20120513757

PATIENT
  Age: 35 Year
  Sex: Male

DRUGS (1)
  1. NICOTINE POLACRILEX [Suspect]
     Indication: SMOKING CESSATION THERAPY
     Dosage: FOR ABOUT 2 YEARS
     Route: 002

REACTIONS (5)
  - SPERM CONCENTRATION ZERO [None]
  - NICOTINE DEPENDENCE [None]
  - INTENTIONAL DRUG MISUSE [None]
  - INFERTILITY [None]
  - DRUG ADMINISTRATION ERROR [None]
